FAERS Safety Report 6370743-1 (Version None)
Quarter: 2009Q3

REPORT INFORMATION
  Report Type: 
  Country: None (occurrence: None)
  Receive Date: 20090923
  Receipt Date: 20070628
  Transmission Date: 20100115
  Serious: No
  Sender: FDA-Public Use
  Company Number: US-ASTRAZENECA-2006UW25244

PATIENT
  Age: 23164 Day
  Sex: Female
  Weight: 93.9 kg

DRUGS (11)
  1. SEROQUEL [Suspect]
     Indication: SLEEP DISORDER
     Dosage: 25 MG
     Route: 048
     Dates: start: 20040326, end: 20050420
  2. TRIAMTERENE [Concomitant]
  3. LOPRESSOR [Concomitant]
  4. TRAZODONE [Concomitant]
  5. IBUPROFEN [Concomitant]
  6. DYAZIDE [Concomitant]
  7. METFORMIN HCL [Concomitant]
  8. NAPROSYN [Concomitant]
  9. ESTRADIOL [Concomitant]
  10. CYCLOBENZAPRINE [Concomitant]
  11. GLUCOSAMINE CHONDROITIN [Concomitant]

REACTIONS (2)
  - DIABETES MELLITUS [None]
  - PRURITUS [None]
